FAERS Safety Report 10157672 (Version 1)
Quarter: 2014Q2

REPORT INFORMATION
  Report Type: Spontaneous
  Country: US (occurrence: US)
  Receive Date: 20140507
  Receipt Date: 20140507
  Transmission Date: 20141212
  Serious: Yes (Death)
  Sender: FDA-Public Use
  Company Number: CHPA2014US006062

PATIENT
  Age: 87 Year
  Sex: Male

DRUGS (1)
  1. GAS-X UNKNOWN FORMULA [Suspect]
     Indication: FLATULENCE
     Dosage: UNK, UNK

REACTIONS (1)
  - Myocardial infarction [Fatal]
